FAERS Safety Report 5661203-1 (Version None)
Quarter: 2008Q1

REPORT INFORMATION
  Report Type: 
  Country: None (occurrence: None)
  Receive Date: 20080312
  Receipt Date: 20080228
  Transmission Date: 20080703
  Serious: Yes (Death, Hospitalization)
  Sender: FDA-Public Use
  Company Number: GB-RANBAXY-2007RR-05876

PATIENT

DRUGS (10)
  1. SIMVASTATIN [Suspect]
     Dosage: 40 MG, UNK
     Route: 048
     Dates: start: 20061112, end: 20061230
  2. ALLOPURINOL [Concomitant]
     Dosage: 10 MG, QD
     Route: 048
  3. AMLODIPINE MALEATE [Concomitant]
     Dosage: 5 MG, QD
     Route: 048
  4. BISOPROLOL 5MG TABLETS [Concomitant]
     Dosage: 5 MG, QD
     Route: 048
  5. CLOPIDOGREL [Concomitant]
     Dosage: 75 MG, QD
     Route: 048
  6. ESOMEPRAZOLE MAGNESIUM [Concomitant]
     Dosage: 40 MG, QD
     Route: 048
  7. FUROSEMIDE [Concomitant]
     Dosage: 40 MG, QD
     Route: 065
  8. NICORANDIL [Concomitant]
     Dosage: 20 MG, BID
     Route: 048
  9. TAMSULOSIN HCL [Concomitant]
     Dosage: 400 MG, QD
     Route: 065
  10. LEVOTHYROXINE SODIUM [Concomitant]
     Dosage: 50 UG, QD
     Route: 048

REACTIONS (8)
  - COLITIS [None]
  - GASTROINTESTINAL HAEMORRHAGE [None]
  - GLOMERULONEPHRITIS [None]
  - MYOPATHY [None]
  - PANCREATITIS [None]
  - PLEURAL EFFUSION [None]
  - RENAL FAILURE [None]
  - RHABDOMYOLYSIS [None]
